FAERS Safety Report 15470587 (Version 1)
Quarter: 2018Q4

REPORT INFORMATION
  Report Type: Report from Study
  Country: US (occurrence: US)
  Receive Date: 20181005
  Receipt Date: 20181005
  Transmission Date: 20190205
  Serious: Yes (Hospitalization, Other)
  Sender: FDA-Public Use
  Company Number: US-TAKEDA-2018TUS028691

PATIENT
  Sex: Male

DRUGS (1)
  1. PONATINIB [Suspect]
     Active Substance: PONATINIB
     Indication: CHRONIC MYELOID LEUKAEMIA
     Dosage: 45 MG, QD
     Route: 048
     Dates: start: 20161005

REACTIONS (5)
  - Hypertensive crisis [Unknown]
  - Acute respiratory distress syndrome [Unknown]
  - Chronic kidney disease [Unknown]
  - Pneumonia [Unknown]
  - Renal artery stenosis [Unknown]
